FAERS Safety Report 14262586 (Version 2)
Quarter: 2018Q1

REPORT INFORMATION
  Report Type: Spontaneous
  Country: US (occurrence: US)
  Receive Date: 20171208
  Receipt Date: 20180207
  Transmission Date: 20180508
  Serious: No
  Sender: FDA-Public Use
  Company Number: US-PFIZER INC-2017525908

PATIENT
  Age: 50 Year
  Sex: Female

DRUGS (3)
  1. LEVOTHYROXINE. [Concomitant]
     Active Substance: LEVOTHYROXINE
     Indication: HYPOTHYROIDISM
     Dosage: 125 UG, DAILY
  2. LYRICA [Suspect]
     Active Substance: PREGABALIN
     Indication: THERMAL BURN
     Dosage: UNK
     Dates: start: 2005
  3. LYRICA [Suspect]
     Active Substance: PREGABALIN
     Dosage: UNK

REACTIONS (2)
  - Product use in unapproved indication [Unknown]
  - Accident [Unknown]

NARRATIVE: CASE EVENT DATE: 2005
